FAERS Safety Report 5239462-9 (Version None)
Quarter: 2007Q1

REPORT INFORMATION
  Report Type: 
  Country: None (occurrence: None)
  Receive Date: 20070216
  Receipt Date: 20070206
  Transmission Date: 20070707
  Serious: Yes (Other)
  Sender: FDA-Public Use
  Company Number: FR-JNJFOC-20061006201

PATIENT
  Age: 68 Year
  Sex: Male

DRUGS (8)
  1. OFLOCET [Suspect]
     Indication: URINARY TRACT INFECTION
     Route: 048
  2. REQUIP [Concomitant]
     Indication: PARKINSON'S DISEASE
     Route: 048
  3. LASIX [Concomitant]
     Route: 048
  4. LASIX [Concomitant]
     Route: 048
  5. EQUANIL [Concomitant]
     Indication: DEPRESSION
     Route: 048
  6. FLUOXETINE [Concomitant]
     Indication: DEPRESSION
     Route: 048
  7. TRAMADOL HCL [Concomitant]
     Indication: PAIN
     Route: 048
  8. DOMPERIDONE [Concomitant]
     Indication: GASTROINTESTINAL DISORDER
     Route: 048

REACTIONS (5)
  - ACCIDENTAL OVERDOSE [None]
  - DIZZINESS [None]
  - FEELING HOT [None]
  - HYPERHIDROSIS [None]
  - PAIN IN EXTREMITY [None]
